FAERS Safety Report 18727088 (Version 1)
Quarter: 2021Q1

REPORT INFORMATION
  Report Type: Spontaneous
  Country: JP (occurrence: JP)
  Receive Date: 20210111
  Receipt Date: 20210111
  Transmission Date: 20210419
  Serious: Yes (Other)
  Sender: FDA-Public Use
  Company Number: JP-TAKEDA-2021TJP000371

PATIENT
  Sex: Male

DRUGS (10)
  1. CELECOX [Suspect]
     Active Substance: CELECOXIB
     Indication: BACK PAIN
     Dosage: UNK UNK, 2X/DAY (EVERY TIME ONE TABLET, TWICE DAILY, IN, BID
     Route: 048
  2. CELECOX [Suspect]
     Active Substance: CELECOXIB
     Indication: PROCTALGIA
  3. BUFFERIN [ACETYLSALICYLIC ACID] [Concomitant]
     Indication: HEADACHE
     Dosage: UNK
     Route: 048
  4. LANSOPRAZOLE. [Suspect]
     Active Substance: LANSOPRAZOLE
     Indication: PRODUCT USED FOR UNKNOWN INDICATION
     Dosage: UNK
     Route: 065
  5. CELECOX [Suspect]
     Active Substance: CELECOXIB
     Indication: ANAL FISTULA
     Dosage: UNK, 2X/DAY (TWICE DAILY, EVERY TIME TWO TABLETS, IN THE MORNING AND EVENING)
     Route: 048
  6. LAC?B [Suspect]
     Active Substance: BIFIDOBACTERIUM SPP.
     Indication: PRODUCT USED FOR UNKNOWN INDICATION
     Dosage: UNK
     Route: 065
  7. LOXONIN [Concomitant]
     Active Substance: LOXOPROFEN SODIUM
     Indication: HEADACHE
     Dosage: UNK
     Route: 048
  8. CELECOX [Suspect]
     Active Substance: CELECOXIB
     Indication: HEADACHE
  9. SELBEX [Suspect]
     Active Substance: TEPRENONE
     Indication: PRODUCT USED FOR UNKNOWN INDICATION
     Dosage: UNK
     Route: 065
  10. BIOFERMIN [LACTOMIN] [Suspect]
     Active Substance: DIETARY SUPPLEMENT\PROBIOTICS
     Indication: PRODUCT USED FOR UNKNOWN INDICATION
     Dosage: UNK
     Route: 065

REACTIONS (5)
  - Haemorrhoidal haemorrhage [Unknown]
  - Gastrointestinal pain [Unknown]
  - Anal abscess [Unknown]
  - Migraine [Unknown]
  - Proctalgia [Unknown]
